FAERS Safety Report 24374488 (Version 2)
Quarter: 2024Q4

REPORT INFORMATION
  Report Type: Spontaneous
  Country: US (occurrence: US)
  Receive Date: 20240927
  Receipt Date: 20241002
  Transmission Date: 20250114
  Serious: Yes (Hospitalization)
  Sender: PFIZER
  Company Number: US-MLMSERVICE-20240918-PI193333-00218-4

PATIENT
  Age: 8 Decade
  Sex: Female

DRUGS (6)
  1. METHOTREXATE SODIUM [Suspect]
     Active Substance: METHOTREXATE SODIUM
     Indication: B precursor type acute leukaemia
     Dosage: UNK, 2X/WEEK (TWO TIMES PER WEEK TRIPLE THERAPY, THREE TREATMENTS)
     Route: 037
  2. METHOTREXATE SODIUM [Suspect]
     Active Substance: METHOTREXATE SODIUM
     Indication: Nervous system disorder
     Dosage: UNK, ONCE WEEKLY TRIPLE THERAPY
     Route: 037
  3. METHOTREXATE SODIUM [Suspect]
     Active Substance: METHOTREXATE SODIUM
     Indication: Acute lymphocytic leukaemia recurrent
  4. CYTARABINE [Concomitant]
     Active Substance: CYTARABINE
     Indication: B precursor type acute leukaemia
     Dosage: UNK, 2X/WEEK (TWO TIMES PER WEEK TRIPLE THERAPY, THREE TREATMENTS)
     Route: 037
  5. CYTARABINE [Concomitant]
     Active Substance: CYTARABINE
     Indication: Nervous system disorder
     Dosage: WEANED TO ONCE WEEKLY TRIPLE THERAPY
     Route: 037
  6. CYTARABINE [Concomitant]
     Active Substance: CYTARABINE
     Indication: Acute lymphocytic leukaemia recurrent

REACTIONS (1)
  - Transient ischaemic attack [Recovering/Resolving]
